FAERS Safety Report 12928437 (Version 1)
Quarter: 2016Q4

REPORT INFORMATION
  Report Type: Report from Study
  Country: CA (occurrence: CA)
  Receive Date: 20161110
  Receipt Date: 20161110
  Transmission Date: 20170207
  Serious: Yes (Other)
  Sender: FDA-Public Use
  Company Number: CA-BIOGEN-2016BI00306034

PATIENT
  Age: 27 Year
  Sex: Female

DRUGS (4)
  1. TECFIDERA [Suspect]
     Active Substance: DIMETHYL FUMARATE
     Dosage: SPECIAL TITRATION  DOSE?AS  PER  PHYSICIAN ORDERS:?120  MG  PO  AM  +240 MG  PO PM
     Route: 048
     Dates: start: 20161023, end: 20161030
  2. TECFIDERA [Suspect]
     Active Substance: DIMETHYL FUMARATE
     Dosage: MAINTENANCE DOSE
     Route: 048
     Dates: start: 20161031
  3. TECFIDERA [Suspect]
     Active Substance: DIMETHYL FUMARATE
     Dosage: SPECIAL TITRATION  DOSE?AS  PER  PHYSICIAN ORDERS:?120  MG  PO  AM  +240 MG  PO PM
     Route: 048
     Dates: start: 20161023, end: 20161030
  4. TECFIDERA [Suspect]
     Active Substance: DIMETHYL FUMARATE
     Indication: MULTIPLE SCLEROSIS
     Dosage: SPECIAL TITRATION DOSE AS PER PHYSICIAN ORDERS
     Route: 048
     Dates: start: 20161009, end: 20161022

REACTIONS (8)
  - Acne [Not Recovered/Not Resolved]
  - Memory impairment [Recovered/Resolved]
  - Abdominal pain [Recovered/Resolved]
  - Dry skin [Not Recovered/Not Resolved]
  - Nausea [Recovered/Resolved]
  - Decreased appetite [Recovered/Resolved]
  - Prescribed underdose [Recovered/Resolved]
  - Hallucination, visual [Not Recovered/Not Resolved]

NARRATIVE: CASE EVENT DATE: 201610
